FAERS Safety Report 10113330 (Version 1)
Quarter: 2014Q2

REPORT INFORMATION
  Report Type: Spontaneous
  Country: US (occurrence: US)
  Receive Date: 20140425
  Receipt Date: 20140425
  Transmission Date: 20141212
  Serious: Yes (Other)
  Sender: FDA-Public Use
  Company Number: US-BAYER-2014-057894

PATIENT
  Sex: Male

DRUGS (1)
  1. DACARBAZINE-DOME [Suspect]

REACTIONS (1)
  - Cancer in remission [None]
